FAERS Safety Report 4314571-7 (Version None)
Quarter: 2004Q1

REPORT INFORMATION
  Report Type: 
  Country: None (occurrence: None)
  Receive Date: 20040309
  Receipt Date: 20040219
  Transmission Date: 20041129
  Serious: Yes (Hospitalization)
  Sender: FDA-Public Use
  Company Number: DSA_23871_2004

PATIENT
  Age: 64 Year
  Sex: Male

DRUGS (7)
  1. ENALAPRIL MALEATE [Suspect]
  2. DIGOXIN [Suspect]
     Dosage: 250 MCG QD PO
     Route: 048
     Dates: start: 20000710, end: 20000810
  3. DIGOXIN [Suspect]
     Dosage: 750 MCG BID PO
     Route: 048
     Dates: end: 20000710
  4. SPIRONOLACTONE [Suspect]
     Dosage: 25 MG QD
  5. FUROSEMIDE [Suspect]
  6. DOXAZOSIN MESYLATE [Concomitant]
  7. WARFARIN SODIUM [Concomitant]

REACTIONS (19)
  - ANOREXIA [None]
  - AORTIC VALVE DISEASE MIXED [None]
  - BLOOD CREATININE INCREASED [None]
  - BLOOD UREA INCREASED [None]
  - BODY TEMPERATURE INCREASED [None]
  - CARDIAC MURMUR [None]
  - CARDIAC VALVE VEGETATION [None]
  - DEHYDRATION [None]
  - DIZZINESS [None]
  - ENDOCARDITIS [None]
  - HAEMOGLOBIN DECREASED [None]
  - HYPERKALAEMIA [None]
  - HYPONATRAEMIA [None]
  - HYPOTENSION [None]
  - RENAL IMPAIRMENT [None]
  - STREPTOCOCCAL BACTERAEMIA [None]
  - THERAPEUTIC AGENT TOXICITY [None]
  - VISION BLURRED [None]
  - WHITE BLOOD CELL COUNT INCREASED [None]
